FAERS Safety Report 5119910-5 (Version None)
Quarter: 2006Q3

REPORT INFORMATION
  Report Type: 
  Country: None (occurrence: None)
  Receive Date: 20060929
  Receipt Date: 20060927
  Transmission Date: 20061208
  Serious: Yes (Hospitalization)
  Sender: FDA-Public Use
  Company Number: THQ2006A00866

PATIENT
  Age: 60 Year
  Sex: Male

DRUGS (5)
  1. ACTOS [Suspect]
     Indication: DIABETES MELLITUS NON-INSULIN-DEPENDENT
     Dosage: 30 MG (30 MG, 1 IN 1 D)
     Route: 048
     Dates: start: 20060502
  2. PANTOZOL /GFR/ (PANTOPRAZOLE SODIUM) [Concomitant]
  3. ASCAL (ACETYLSALICYLATE CALCIUM) [Concomitant]
  4. METFORMIN HCL [Concomitant]
  5. EFFEXOR [Concomitant]

REACTIONS (1)
  - RENAL FAILURE ACUTE [None]
